FAERS Safety Report 11200371 (Version 1)
Quarter: 2015Q2

REPORT INFORMATION
  Report Type: Spontaneous
  Country: DE (occurrence: DE)
  Receive Date: 20150618
  Receipt Date: 20150618
  Transmission Date: 20150821
  Serious: Yes (Other)
  Sender: FDA-Public Use
  Company Number: PHHY2015DE071342

PATIENT
  Sex: Female

DRUGS (3)
  1. PREDNISONE. [Suspect]
     Active Substance: PREDNISONE
     Indication: BRONCHOPULMONARY ASPERGILLOSIS ALLERGIC
     Dosage: UNK
     Route: 048
  2. VORICONAZOLE. [Suspect]
     Active Substance: VORICONAZOLE
     Indication: BRONCHOPULMONARY ASPERGILLOSIS ALLERGIC
     Route: 065
  3. ITRACONAZOLE. [Concomitant]
     Active Substance: ITRACONAZOLE
     Indication: BRONCHOPULMONARY ASPERGILLOSIS ALLERGIC
     Route: 065

REACTIONS (5)
  - Bacterial disease carrier [Unknown]
  - Blood glucose abnormal [Recovered/Resolved]
  - Weight increased [Unknown]
  - Cushing^s syndrome [Unknown]
  - Aspergillus infection [Recovered/Resolved]
